FAERS Safety Report 13478623 (Version 5)
Quarter: 2018Q2

REPORT INFORMATION
  Report Type: Report from Study
  Country: US (occurrence: US)
  Receive Date: 20170424
  Receipt Date: 20180423
  Transmission Date: 20180711
  Serious: No
  Sender: FDA-Public Use
  Company Number: US-AMGEN-USASL2017031632

PATIENT
  Age: 64 Year
  Sex: Female
  Weight: 79.82 kg

DRUGS (17)
  1. REPATHA [Suspect]
     Active Substance: EVOLOCUMAB
     Indication: HYPERCHOLESTEROLAEMIA
     Dosage: 140 MG, Q2WK
     Route: 065
  2. VALIUM [Concomitant]
     Active Substance: DIAZEPAM
     Dosage: UNK UNK, AS NECESSARY
  3. IBUGESIC PLUS [Concomitant]
     Active Substance: ACETAMINOPHEN\IBUPROFEN
     Dosage: UNK UNK, AS NECESSARY
  4. CALCIUM [Concomitant]
     Active Substance: CALCIUM
     Dosage: UNK UNK, QD
  5. BENICAR [Concomitant]
     Active Substance: OLMESARTAN MEDOXOMIL
  6. VERAMYST [Concomitant]
     Active Substance: FLUTICASONE FUROATE
  7. ASA [Concomitant]
     Active Substance: ASPIRIN
     Dosage: 81 UNK, QD
  8. SINGULAIR [Concomitant]
     Active Substance: MONTELUKAST SODIUM
     Dosage: 10 UNK, QD
  9. MULTIVITAMI [Concomitant]
     Dosage: UNK UNK, QD
  10. ASTEPRO [Concomitant]
     Active Substance: AZELASTINE HYDROCHLORIDE
     Dosage: UNK UNK, BID
  11. ANASTROZOLE. [Concomitant]
     Active Substance: ANASTROZOLE
     Dosage: 24 MUG, BID
  12. AMLODIPINE [Concomitant]
     Active Substance: AMLODIPINE BESYLATE
     Dosage: 2.5 MG, QD
  13. ALLEGRA [Concomitant]
     Active Substance: FEXOFENADINE HYDROCHLORIDE
     Dosage: UNK UNK, AS NECESSARY
  14. LIPTRUZET [Concomitant]
     Active Substance: ATORVASTATIN CALCIUM\EZETIMIBE
  15. FENOFIBRATE. [Concomitant]
     Active Substance: FENOFIBRATE
     Dosage: 135 UNK, QD
  16. VITAMIN C [Concomitant]
     Active Substance: ASCORBIC ACID
     Dosage: UNK UNK, QD
  17. BYSTOLIC [Concomitant]
     Active Substance: NEBIVOLOL HYDROCHLORIDE
     Dosage: 5 MG, QD

REACTIONS (4)
  - Intermittent claudication [Unknown]
  - Oedema peripheral [Unknown]
  - Insomnia [Unknown]
  - Dyspnoea exertional [Unknown]

NARRATIVE: CASE EVENT DATE: 20180321
